FAERS Safety Report 18131764 (Version 3)
Quarter: 2020Q3

REPORT INFORMATION
  Report Type: Spontaneous
  Country: IT (occurrence: IT)
  Receive Date: 20200810
  Receipt Date: 20200820
  Transmission Date: 20201103
  Serious: Yes (Death)
  Sender: FDA-Public Use
  Company Number: IT-ROCHE-2656486

PATIENT
  Age: 32 Year
  Sex: Female
  Weight: 50 kg

DRUGS (12)
  1. CLEXANE [Concomitant]
     Active Substance: ENOXAPARIN SODIUM
     Dosage: 1 VIAL
     Route: 058
  2. ACYCLOVIR. [Concomitant]
     Active Substance: ACYCLOVIR
     Dosage: X 2,
  3. DIBASE [Concomitant]
     Active Substance: CHOLECALCIFEROL
  4. TRACLEER [Concomitant]
     Active Substance: BOSENTAN
     Dosage: X 2
  5. CARDIOASAWIN [Concomitant]
  6. TOCILIZUMAB. [Suspect]
     Active Substance: TOCILIZUMAB
     Indication: COVID-19 PNEUMONIA
     Dosage: FREQUENCY: 2 INFUSION
     Route: 042
     Dates: start: 20200312, end: 20200313
  7. TARDYFER [Concomitant]
     Active Substance: FERROUS SULFATE
  8. LANSOPRAZOLE. [Concomitant]
     Active Substance: LANSOPRAZOLE
  9. MEDROL [Concomitant]
     Active Substance: METHYLPREDNISOLONE
  10. SELEXIPAG [Concomitant]
     Active Substance: SELEXIPAG
     Dosage: 800 MG X 2
  11. FOLINA [Concomitant]
  12. BACTRIM [Concomitant]
     Active Substance: SULFAMETHOXAZOLE\TRIMETHOPRIM

REACTIONS (3)
  - Respiratory failure [Fatal]
  - Product use in unapproved indication [Unknown]
  - Off label use [Unknown]

NARRATIVE: CASE EVENT DATE: 20200312
